FAERS Safety Report 11536947 (Version 1)
Quarter: 2015Q3

REPORT INFORMATION
  Report Type: Spontaneous
  Country: US (occurrence: US)
  Receive Date: 20150922
  Receipt Date: 20150922
  Transmission Date: 20151125
  Serious: Yes (Death)
  Sender: FDA-Public Use
  Company Number: PHHY2015US111801

PATIENT
  Age: 58 Year
  Sex: Female

DRUGS (2)
  1. GRANISETRON [Suspect]
     Active Substance: GRANISETRON
     Indication: ANTIEMETIC SUPPORTIVE CARE
     Route: 065
  2. SERTRALINE [Suspect]
     Active Substance: SERTRALINE HYDROCHLORIDE
     Indication: MENTAL STATUS CHANGES
     Route: 065

REACTIONS (1)
  - Posterior reversible encephalopathy syndrome [Fatal]
